FAERS Safety Report 14062861 (Version 1)
Quarter: 2017Q4

REPORT INFORMATION
  Report Type: Spontaneous
  Country: US (occurrence: US)
  Receive Date: 20171009
  Receipt Date: 20171009
  Transmission Date: 20180321
  Serious: No
  Sender: FDA-Public Use
  Company Number: US-JNJFOC-20170804777

PATIENT
  Age: 51 Year
  Sex: Female
  Weight: 56.7 kg

DRUGS (3)
  1. ZYRTEC-D [Suspect]
     Active Substance: CETIRIZINE HYDROCHLORIDE\PSEUDOEPHEDRINE HYDROCHLORIDE
     Route: 048
  2. SALINE [Concomitant]
     Active Substance: SODIUM CHLORIDE
     Indication: SINUS DISORDER
     Route: 065
  3. ZYRTEC-D [Suspect]
     Active Substance: CETIRIZINE HYDROCHLORIDE\PSEUDOEPHEDRINE HYDROCHLORIDE
     Indication: MULTIPLE ALLERGIES
     Route: 048

REACTIONS (4)
  - Tremor [Unknown]
  - Hyperhidrosis [Unknown]
  - Incorrect dose administered [Unknown]
  - Heart rate increased [Unknown]
